FAERS Safety Report 24250051 (Version 1)
Quarter: 2024Q3

REPORT INFORMATION
  Report Type: Spontaneous
  Country: US (occurrence: US)
  Receive Date: 20240826
  Receipt Date: 20240826
  Transmission Date: 20241016
  Serious: No
  Sender: AMERICAN REGENT
  Company Number: US-AMERICAN REGENT INC-2023002012

PATIENT
  Age: 42 Year
  Sex: Female

DRUGS (3)
  1. FERRIC CARBOXYMALTOSE [Suspect]
     Active Substance: FERRIC CARBOXYMALTOSE
     Indication: Anaemia
     Dosage: UNK, SINGLE
     Route: 042
     Dates: start: 2022, end: 2022
  2. FERRIC CARBOXYMALTOSE [Suspect]
     Active Substance: FERRIC CARBOXYMALTOSE
     Dosage: UNK, SINGLE
     Route: 042
     Dates: start: 20230808, end: 20230808
  3. FERRIC CARBOXYMALTOSE [Suspect]
     Active Substance: FERRIC CARBOXYMALTOSE
     Dosage: UNK, SINGLE
     Route: 042
     Dates: start: 20230815, end: 20230815

REACTIONS (11)
  - Peripheral swelling [Not Recovered/Not Resolved]
  - Malaise [Not Recovered/Not Resolved]
  - Joint noise [Not Recovered/Not Resolved]
  - Lethargy [Not Recovered/Not Resolved]
  - Head discomfort [Not Recovered/Not Resolved]
  - Blood calcium decreased [Unknown]
  - Arthralgia [Not Recovered/Not Resolved]
  - Headache [Not Recovered/Not Resolved]
  - Pruritus [Not Recovered/Not Resolved]
  - Paraesthesia [Not Recovered/Not Resolved]
  - Blood phosphorus decreased [Unknown]

NARRATIVE: CASE EVENT DATE: 20230801
